FAERS Safety Report 16450181 (Version 1)
Quarter: 2019Q2

REPORT INFORMATION
  Report Type: Spontaneous
  Country: DE (occurrence: DE)
  Receive Date: 20190619
  Receipt Date: 20190619
  Transmission Date: 20190711
  Serious: Yes (Other)
  Sender: FDA-Public Use
  Company Number: DE-TORRENT-00005734

PATIENT
  Age: 64 Year
  Sex: Male
  Weight: 118 kg

DRUGS (13)
  1. NEPRESOL (DIHYDRALAZINE SULFATE) [Suspect]
     Active Substance: DIHYDRALAZINE SULFATE
     Indication: PRODUCT USED FOR UNKNOWN INDICATION
     Dosage: DAILY DOSE: 50 MG MILLIGRAM(S) EVERY DAY
     Dates: start: 2009
  2. PANTOPRAZOLE [Suspect]
     Active Substance: PANTOPRAZOLE
     Indication: PRODUCT USED FOR UNKNOWN INDICATION
     Dosage: DAILY DOSE: 80 MG MILLIGRAM(S) EVERY DAY
     Dates: start: 2009
  3. L-THYROXIN HENNING [Suspect]
     Active Substance: LEVOTHYROXINE SODIUM
     Indication: PRODUCT USED FOR UNKNOWN INDICATION
     Dosage: DAILY DOSE: 75 G MICROGRAM(S) EVERY DAY
     Dates: start: 2009
  4. OPIPRAMOL [Suspect]
     Active Substance: OPIPRAMOL
     Indication: PRODUCT USED FOR UNKNOWN INDICATION
     Dosage: UNKNOWN
  5. AMLODIPINE [Suspect]
     Active Substance: AMLODIPINE BESYLATE
     Indication: PRODUCT USED FOR UNKNOWN INDICATION
     Dosage: UNKNOWN
     Dates: start: 201305, end: 20161120
  6. HYDROCHLOROTHIAZIDE. [Suspect]
     Active Substance: HYDROCHLOROTHIAZIDE
     Indication: PRODUCT USED FOR UNKNOWN INDICATION
     Dosage: UNKNOWN
     Dates: end: 20161120
  7. RAMIPRIL BETA [Suspect]
     Active Substance: RAMIPRIL
     Indication: PRODUCT USED FOR UNKNOWN INDICATION
     Dosage: DAILY DOSE: 10 MG MILLIGRAM(S) EVERY DAY
     Dates: start: 2010, end: 20161120
  8. METOPROLOL. [Suspect]
     Active Substance: METOPROLOL
     Indication: PRODUCT USED FOR UNKNOWN INDICATION
     Dosage: DAILY DOSE: 95.2 MG MILLIGRAM(S) EVERY DAY
     Dates: start: 2009, end: 201611
  9. BAYOTENSIN AKUT 5MG/1ML [Concomitant]
     Active Substance: NITRENDIPINE
     Indication: HYPERTENSION
     Dosage: 2-3X IM JAHR BEI SEHR HOHEM BLUTDRUCK
     Dates: start: 2014
  10. TAMSULOSIN [Suspect]
     Active Substance: TAMSULOSIN
     Indication: PRODUCT USED FOR UNKNOWN INDICATION
     Dosage: DAILY DOSE: 0.4 MG MILLIGRAM(S) EVERY DAY
     Dates: start: 201210
  11. ATORVASTATIN [Suspect]
     Active Substance: ATORVASTATIN
     Indication: PRODUCT USED FOR UNKNOWN INDICATION
     Dosage: UNKNOWN
  12. ASS 100 [Concomitant]
     Active Substance: ASPIRIN
     Indication: PRODUCT USED FOR UNKNOWN INDICATION
     Dosage: UNKNOWN
  13. MAGNESIUM [Concomitant]
     Active Substance: MAGNESIUM
     Indication: PRODUCT USED FOR UNKNOWN INDICATION
     Dosage: DAILY DOSE: 400 MG MILLIGRAM(S) EVERY DAY

REACTIONS (42)
  - Myalgia [Unknown]
  - Sleep disorder [Unknown]
  - Depression [Unknown]
  - Vision blurred [Unknown]
  - Muscular weakness [Unknown]
  - Oedema peripheral [Unknown]
  - Muscle spasms [Unknown]
  - Photophobia [Unknown]
  - Dry mouth [Unknown]
  - Back pain [Unknown]
  - Anxiety [Unknown]
  - Arthralgia [Unknown]
  - Weight increased [Unknown]
  - Abdominal pain [Unknown]
  - Dizziness [Unknown]
  - Balance disorder [Unknown]
  - Dry eye [Unknown]
  - Asthenia [Unknown]
  - Chest pain [Unknown]
  - Lacrimal disorder [Unknown]
  - Depressed mood [Unknown]
  - Headache [Unknown]
  - Conjunctivitis [Unknown]
  - Magnesium deficiency [Unknown]
  - Pruritus [Unknown]
  - Hypoaesthesia [Unknown]
  - Gingival bleeding [Unknown]
  - Sexual dysfunction [Unknown]
  - Visual impairment [Unknown]
  - Muscle spasms [Unknown]
  - Fatigue [Unknown]
  - Abdominal pain upper [Unknown]
  - Nervousness [Unknown]
  - Oedema [Unknown]
  - Diarrhoea [Unknown]
  - Dyspnoea [Unknown]
  - Nasal dryness [Unknown]
  - Memory impairment [Unknown]
  - Respiratory distress [Unknown]
  - Nasal congestion [Unknown]
  - Micturition urgency [Unknown]
  - Erectile dysfunction [Unknown]

NARRATIVE: CASE EVENT DATE: 2009
